FAERS Safety Report 18229303 (Version 1)
Quarter: 2020Q3

REPORT INFORMATION
  Report Type: Spontaneous
  Country: US (occurrence: US)
  Receive Date: 20200903
  Receipt Date: 20200903
  Transmission Date: 20201103
  Serious: No
  Sender: FDA-Public Use
  Company Number: US-PERRIGO-19US016392

PATIENT
  Age: 59 Year
  Sex: Female
  Weight: 59.86 kg

DRUGS (4)
  1. VALSARTAN. [Concomitant]
     Active Substance: VALSARTAN
     Indication: HYPERTENSION
     Dosage: UNK
     Route: 065
  2. PANTOPRAZOLE [Concomitant]
     Active Substance: PANTOPRAZOLE
     Indication: GASTROINTESTINAL DISORDER
     Dosage: 40 MG, UNK
     Route: 048
  3. EVAMIST [Suspect]
     Active Substance: ESTRADIOL
     Indication: HORMONE LEVEL ABNORMAL
     Dosage: 3.06 MG, QD
     Route: 062
     Dates: start: 201910, end: 20191208
  4. EVAMIST [Suspect]
     Active Substance: ESTRADIOL
     Dosage: 3.06 MG, QD
     Route: 062
     Dates: start: 20191209

REACTIONS (1)
  - Therapeutic product effect variable [Not Recovered/Not Resolved]

NARRATIVE: CASE EVENT DATE: 201910
